FAERS Safety Report 21465668 (Version 1)
Quarter: 2022Q4

REPORT INFORMATION
  Report Type: Spontaneous
  Country: IN (occurrence: IN)
  Receive Date: 20221017
  Receipt Date: 20221017
  Transmission Date: 20230113
  Serious: Yes (Death, Other)
  Sender: FDA-Public Use
  Company Number: IN-AMGEN-INDSP2022175144

PATIENT

DRUGS (1)
  1. NEUPOGEN [Suspect]
     Active Substance: FILGRASTIM
     Indication: Hepatic cirrhosis
     Dosage: 5 MICROGRAM/KILOGRAM, BID
     Route: 058

REACTIONS (18)
  - Death [Fatal]
  - Multiple organ dysfunction syndrome [Fatal]
  - Upper gastrointestinal haemorrhage [Fatal]
  - Hepatic encephalopathy [Fatal]
  - Sepsis [Fatal]
  - Pneumonia [Fatal]
  - Renal failure [Fatal]
  - Acute coronary syndrome [Fatal]
  - Hepatorenal syndrome [Fatal]
  - Spontaneous bacterial peritonitis [Fatal]
  - Hypersplenism [Unknown]
  - Hepatic cirrhosis [Unknown]
  - Therapy non-responder [Unknown]
  - Nausea [Recovered/Resolved]
  - Vomiting [Recovered/Resolved]
  - Pain [Recovered/Resolved]
  - Platelet count decreased [Unknown]
  - Drug effective for unapproved indication [Unknown]
